FAERS Safety Report 25470483 (Version 2)
Quarter: 2025Q3

REPORT INFORMATION
  Report Type: Spontaneous
  Country: US (occurrence: US)
  Receive Date: 20250624
  Receipt Date: 20250908
  Transmission Date: 20251021
  Serious: No
  Sender: SANOFI AVENTIS
  Company Number: US-SA-2025SA175909

PATIENT
  Age: 72 Year
  Sex: Female

DRUGS (10)
  1. DUPIXENT [Suspect]
     Active Substance: DUPILUMAB
     Indication: Asthma
     Dosage: 300 MG, QOW
     Route: 058
  2. BREZTRI [Concomitant]
     Active Substance: BUDESONIDE\FORMOTEROL\GLYCOPYRROLATE
     Dosage: 2 PUFFS INHALATION TWICE A DAY
     Route: 055
  3. ALBUTEROL SULFATE [Concomitant]
     Active Substance: ALBUTEROL SULFATE
  4. DULOXETINE HYDROCHLORIDE [Concomitant]
     Active Substance: DULOXETINE HYDROCHLORIDE
     Dosage: 1 CAPSULE ORAL ONCE A DAY
     Route: 048
  5. RELPAX [Concomitant]
     Active Substance: ELETRIPTAN HYDROBROMIDE
     Dosage: 1 TABLET ORALLY ONCE A DAY
     Route: 048
  6. ASPIRIN [Concomitant]
     Active Substance: ASPIRIN
     Dosage: 1 TABLET ORALLY ONCE A DAY
     Route: 048
  7. ALBUTEROL SULFATE [Concomitant]
     Active Substance: ALBUTEROL SULFATE
  8. TOPIRAMATE [Concomitant]
     Active Substance: TOPIRAMATE
     Dosage: TABLET BY MOUTH EVERY DAY AT BEDTIME
     Route: 048
  9. VITAMIN D NOS [Concomitant]
     Active Substance: CHOLECALCIFEROL\ERGOCALCIFEROL
     Dosage: 1 TABLET ORALLY ONCE A DAY
     Route: 048
  10. NAPROSYN [Concomitant]
     Active Substance: NAPROXEN
     Dosage: 1 TABLET WITH FOOD OR MILK NEEDED ORALLY EVERY 12 HRS
     Route: 048

REACTIONS (12)
  - Neuralgia [Unknown]
  - Abdominal pain upper [Unknown]
  - Oral pain [Unknown]
  - Speech disorder [Unknown]
  - Pain in extremity [Unknown]
  - Injection site pain [Unknown]
  - Dysphonia [Unknown]
  - Arthralgia [Unknown]
  - Cough [Unknown]
  - Contusion [Unknown]
  - Dyspnoea [Unknown]
  - Obesity [Unknown]
